FAERS Safety Report 9156429 (Version 1)
Quarter: 2013Q1

REPORT INFORMATION
  Report Type: Spontaneous
  Country: GB (occurrence: None)
  Receive Date: 20130204
  Receipt Date: 20130204
  Transmission Date: 20140127
  Serious: Yes (Hospitalization)
  Sender: FDA-Public Use
  Company Number: 2013-00148

PATIENT
  Sex: Male
  Weight: 2.49 kg

DRUGS (5)
  1. CEFALEXIN [Suspect]
     Indication: PNEUMONIA ESCHERICHIA
     Dosage: 1500 MG (500 MG, 3 IN 1), TRANSPLACENTAL
     Route: 064
  2. ACETYLSALICYLIC ACID [Suspect]
     Indication: PRE-ECLAMPSIA
     Route: 064
  3. ACETYLSALICYLIC ACID [Suspect]
     Indication: PROPHYLAXIS
     Route: 064
  4. NEORAL [Suspect]
     Indication: NEPHROTIC SYNDROME
     Dosage: 100 MG (50 MG, 2 IN 1 D), TRANSPLACENTAL
     Route: 064
  5. FERROUS SULPHATE DRIED+ IRON SULPHATE(FERROUS SULPHATE) [Suspect]
     Indication: ANAEMIA
     Route: 064

REACTIONS (4)
  - Maternal drugs affecting foetus [None]
  - Premature baby [None]
  - Neonatal respiratory distress syndrome [None]
  - Apgar score low [None]
